FAERS Safety Report 4810361-7 (Version None)
Quarter: 2005Q4

REPORT INFORMATION
  Report Type: 
  Country: None (occurrence: None)
  Receive Date: 20051024
  Receipt Date: 20051007
  Transmission Date: 20060501
  Serious: Yes (Hospitalization)
  Sender: FDA-Public Use
  Company Number: 200509IM000478

PATIENT
  Age: 59 Year
  Sex: Female

DRUGS (4)
  1. ADVAFERON (A643_INTERFERON ALFACON-1) [Suspect]
     Indication: HEPATITIS C
     Dosage: SEE IMAGE
     Route: 030
     Dates: start: 20030217, end: 20030301
  2. ADVAFERON (A643_INTERFERON ALFACON-1) [Suspect]
     Indication: HEPATITIS C
     Dosage: SEE IMAGE
     Route: 030
     Dates: start: 20030312, end: 20030324
  3. URSODEOXYCHOLIC ACID [Concomitant]
  4. ADALAT [Concomitant]

REACTIONS (7)
  - ABDOMINAL PAIN UPPER [None]
  - ANOREXIA [None]
  - AUTOIMMUNE HEPATITIS [None]
  - GASTRITIS [None]
  - MALAISE [None]
  - THERAPY NON-RESPONDER [None]
  - THYROIDITIS CHRONIC [None]
